FAERS Safety Report 8077723-9 (Version None)
Quarter: 2012Q1

REPORT INFORMATION
  Report Type: 
  Country: None (occurrence: None)
  Receive Date: 20120127
  Receipt Date: 20120123
  Transmission Date: 20120608
  Serious: Yes (Other)
  Sender: FDA-Public Use
  Company Number: JP-PFIZER INC-2012018518

PATIENT
  Age: 13 Year
  Sex: Female

DRUGS (4)
  1. LEFTOSE [Concomitant]
     Dosage: 30 MG, UNK
     Route: 048
     Dates: start: 20120114, end: 20120118
  2. MUCODYNE [Concomitant]
     Dosage: 750 MG, UNK
     Route: 048
     Dates: start: 20120114, end: 20120118
  3. ACETAMINOPHEN [Concomitant]
     Dosage: 200 MG, AS NEEDED
     Route: 048
     Dates: start: 20120114
  4. ALPRAZOLAM [Suspect]
     Dosage: 1.2 MG/DAY
     Route: 048
     Dates: start: 20120114, end: 20120118

REACTIONS (1)
  - HYPOACUSIS [None]
